FAERS Safety Report 5596939-4 (Version None)
Quarter: 2007Q4

REPORT INFORMATION
  Report Type: 
  Country: None (occurrence: None)
  Receive Date: 20071220
  Receipt Date: 20071012
  Transmission Date: 20080405
  Serious: Yes (Hospitalization)
  Sender: FDA-Public Use
  Company Number: A03200705995

PATIENT
  Age: 39 Year
  Sex: Female

DRUGS (1)
  1. AMBIEN [Suspect]
     Dosage: TOOK 27 TABLETS AT ONE - ORAL
     Route: 048

REACTIONS (2)
  - LETHARGY [None]
  - OVERDOSE [None]
